FAERS Safety Report 4378915-2 (Version None)
Quarter: 2004Q2

REPORT INFORMATION
  Report Type: 
  Country: None (occurrence: None)
  Receive Date: 20040610
  Receipt Date: 20040531
  Transmission Date: 20050107
  Serious: Yes (Hospitalization, Other)
  Sender: FDA-Public Use
  Company Number: 2004017602

PATIENT
  Age: 37 Year
  Sex: Male
  Weight: 63 kg

DRUGS (8)
  1. NORVASC [Suspect]
     Indication: HYPERTENSION
     Dosage: 5 MG (DAILY), ORAL
     Route: 048
     Dates: start: 20040219, end: 20040318
  2. CARDENALIN (DOXAZOSIN) [Suspect]
     Indication: HYPERTENSION
     Dosage: 2 MG (DAILY), ORAL
     Route: 048
     Dates: start: 20040301, end: 20040301
  3. CILOSTAZOL [Suspect]
     Indication: CEREBRAL INFARCTION
     Dosage: 200 MG (DAILY), ORAL
     Route: 048
     Dates: start: 20031219, end: 20040318
  4. CANDESARTAN CILEXETIL (CANDESARTAN CILEXETIL) [Suspect]
     Indication: HYPERTENSION
     Dosage: 12 MG (DAILY), ORAL
     Route: 048
     Dates: start: 20040302, end: 20040318
  5. ACARBOSE (ACARBOSE) [Concomitant]
  6. INSULIN INJECTION, BIPHASIC (INSULIN INJECTION, BIPHASIC) [Concomitant]
  7. LACTOBACILLUS BIFIDUS, LYOPHILIZED (LACTOBACILLUS BIFIDUS, LYOPHILIZED [Concomitant]
  8. CEFACLOR [Concomitant]

REACTIONS (8)
  - BACTERIAL INFECTION [None]
  - DIABETES MELLITUS [None]
  - DISSEMINATED INTRAVASCULAR COAGULATION [None]
  - GRANULOCYTE COUNT INCREASED [None]
  - GRANULOCYTOPENIA [None]
  - HYPERTENSION [None]
  - RESPIRATORY TRACT INFECTION [None]
  - VIRAL INFECTION [None]
